FAERS Safety Report 8676496 (Version 3)
Quarter: 2013Q4

REPORT INFORMATION
  Report Type: Spontaneous
  Country: GB (occurrence: GB)
  Receive Date: 20120720
  Receipt Date: 20131108
  Transmission Date: 20140711
  Serious: Yes (Other)
  Sender: FDA-Public Use
  Company Number: GB-009507513-1203GBR00037

PATIENT
  Age: 65 Year
  Sex: Male
  Weight: 86 kg

DRUGS (10)
  1. ZOCOR [Suspect]
     Indication: BLOOD CHOLESTEROL INCREASED
     Dosage: 1 DF, QD
     Route: 048
     Dates: start: 20111212, end: 20120203
  2. CLOPIDOGREL [Concomitant]
  3. ISOSORBIDE MONONITRATE [Concomitant]
  4. LEVEMIR [Concomitant]
  5. LEVOTIROXINA S.O [Concomitant]
  6. NICORANDIL [Concomitant]
  7. NOVORAPID [Concomitant]
  8. PRILOSEC [Concomitant]
  9. TILDIEM LA [Concomitant]
  10. OMEPRAZOLE [Concomitant]

REACTIONS (2)
  - Myalgia [Recovering/Resolving]
  - Pain in extremity [Recovering/Resolving]
